FAERS Safety Report 4462571-9 (Version None)
Quarter: 2004Q3

REPORT INFORMATION
  Report Type: 
  Country: None (occurrence: None)
  Receive Date: 20040928
  Receipt Date: 20040914
  Transmission Date: 20050211
  Serious: Yes (Death, Life-Threatening, Hospitalization)
  Sender: FDA-Public Use
  Company Number: 2004228995GB

PATIENT
  Age: 10 Year
  Sex: Male
  Weight: 24.3 kg

DRUGS (2)
  1. GENOTROPIN [Suspect]
     Indication: HYPOPITUITARISM
     Dosage: 1 MG, QD, SUBCUTANEOUS
     Route: 058
     Dates: start: 20020110, end: 20040622
  2. ERYTHROMYCIN [Concomitant]

REACTIONS (5)
  - COMPLICATIONS OF BONE MARROW TRANSPLANT [None]
  - GLIOMA [None]
  - OBSESSIVE-COMPULSIVE DISORDER [None]
  - PARALYSIS [None]
  - VIIITH NERVE LESION [None]
